FAERS Safety Report 25719818 (Version 1)
Quarter: 2025Q3

REPORT INFORMATION
  Report Type: Spontaneous
  Country: AU (occurrence: AU)
  Receive Date: 20250825
  Receipt Date: 20250825
  Transmission Date: 20251021
  Serious: No
  Sender: ALEXION PHARMACEUTICALS
  Company Number: AU-AstraZeneca-CH-00934145A

PATIENT

DRUGS (1)
  1. RILAST [Suspect]
     Active Substance: BUDESONIDE\FORMOTEROL
     Route: 065

REACTIONS (1)
  - Device malfunction [Unknown]
